FAERS Safety Report 11983363 (Version 1)
Quarter: 2016Q1

REPORT INFORMATION
  Report Type: Spontaneous
  Country: AT (occurrence: AT)
  Receive Date: 20160201
  Receipt Date: 20160201
  Transmission Date: 20160526
  Serious: Yes (Hospitalization)
  Sender: FDA-Public Use
  Company Number: AT-PFIZER INC-2016047672

PATIENT
  Age: 47 Year
  Sex: Male

DRUGS (6)
  1. SALAZOPYRIN [Suspect]
     Active Substance: SULFASALAZINE
     Indication: POLYARTHRITIS
     Dosage: 2 DF, 2X/DAY
     Dates: start: 201405
  2. SALAZOPYRIN [Suspect]
     Active Substance: SULFASALAZINE
     Indication: SERONEGATIVE ARTHRITIS
  3. APREDNISOLONE [Suspect]
     Active Substance: PREDNISOLONE
     Indication: POLYARTHRITIS
     Dosage: UNK
     Dates: start: 201405
  4. NOVALGIN [Suspect]
     Active Substance: METAMIZOLE SODIUM
     Indication: SERONEGATIVE ARTHRITIS
  5. NOVALGIN [Suspect]
     Active Substance: METAMIZOLE SODIUM
     Indication: POLYARTHRITIS
     Dosage: UNK, AS NEEDED
     Dates: start: 201405
  6. APREDNISOLONE [Suspect]
     Active Substance: PREDNISOLONE
     Indication: SERONEGATIVE ARTHRITIS

REACTIONS (5)
  - Pancytopenia [Recovered/Resolved]
  - Spondyloarthropathy [Unknown]
  - Febrile neutropenia [Recovered/Resolved]
  - Granulocytopenia [Recovered/Resolved]
  - Bone marrow toxicity [Recovered/Resolved]

NARRATIVE: CASE EVENT DATE: 2014
